FAERS Safety Report 4377490-6 (Version None)
Quarter: 2004Q2

REPORT INFORMATION
  Report Type: 
  Country: None (occurrence: None)
  Receive Date: 20040609
  Receipt Date: 20040524
  Transmission Date: 20050107
  Serious: Yes (Death)
  Sender: FDA-Public Use
  Company Number: US_0405103222

PATIENT
  Sex: Male

DRUGS (5)
  1. GEMCITABINE HYDROCHLORIDE-IV (GEMCITABINE) [Suspect]
     Indication: NON-SMALL CELL LUNG CANCER
  2. DOCETAXEL [Concomitant]
  3. METHYLPREDNISOLONE [Concomitant]
  4. DIPHENHYDRAMINE HCL [Concomitant]
  5. CIMETIDINE [Concomitant]

REACTIONS (3)
  - DIABETIC HYPEROSMOLAR COMA [None]
  - DIARRHOEA [None]
  - HYPERGLYCAEMIA [None]
